FAERS Safety Report 9734672 (Version 1)
Quarter: 2013Q4

REPORT INFORMATION
  Report Type: Spontaneous
  Country: US (occurrence: US)
  Receive Date: 20131206
  Receipt Date: 20131206
  Transmission Date: 20140711
  Serious: Yes (Hospitalization)
  Sender: FDA-Public Use
  Company Number: US-ROCHE-1313156

PATIENT
  Age: 59 Year
  Sex: Male

DRUGS (4)
  1. TRASTUZUMAB [Suspect]
     Indication: ADENOCARCINOMA
     Route: 065
  2. FOLINIC ACID [Concomitant]
     Indication: ADENOCARCINOMA
     Route: 065
  3. FLUOROURACIL [Concomitant]
     Indication: ADENOCARCINOMA
     Route: 065
  4. OXALIPLATIN [Concomitant]
     Indication: ADENOCARCINOMA
     Route: 065

REACTIONS (2)
  - Left ventricular dysfunction [Not Recovered/Not Resolved]
  - Acute coronary syndrome [Not Recovered/Not Resolved]
